FAERS Safety Report 19489008 (Version 1)
Quarter: 2021Q3

REPORT INFORMATION
  Report Type: Spontaneous
  Country: PT (occurrence: PT)
  Receive Date: 20210703
  Receipt Date: 20210703
  Transmission Date: 20211014
  Serious: Yes (Disabling)
  Sender: FDA-Public Use
  Company Number: PT-TEVA-2021-PT-1927957

PATIENT
  Age: 56 Year

DRUGS (1)
  1. FLUOXETINA TEVA 20 MG CAPSULAS [Suspect]
     Active Substance: FLUOXETINE HYDROCHLORIDE
     Indication: DEPRESSION
     Dosage: 2 CP TO THE PA FOR ONE WEEK; PASSES TO 2 PA + 2 LUNCH
     Route: 048

REACTIONS (1)
  - Vision blurred [Not Recovered/Not Resolved]
